FAERS Safety Report 6361433-X (Version None)
Quarter: 2009Q3

REPORT INFORMATION
  Report Type: 
  Country: None (occurrence: None)
  Receive Date: 20090916
  Receipt Date: 20090916
  Transmission Date: 20100115
  Serious: No
  Sender: FDA-Public Use
  Company Number: None

PATIENT
  Age: 63 Year
  Sex: Female
  Weight: 94 kg

DRUGS (2)
  1. BUPINICAINE 0.75% IN DEXTROSE 8.25% [Suspect]
     Indication: KNEE ARTHROPLASTY
     Dosage: 11 MG
     Dates: start: 20090901
  2. BUPINICAINE 0.75% IN DEXTROSE 8.25% [Suspect]
     Indication: SINOATRIAL BLOCK
     Dosage: 11 MG
     Dates: start: 20090901

REACTIONS (1)
  - DRUG INEFFECTIVE [None]
